FAERS Safety Report 4609448-3 (Version None)
Quarter: 2005Q1

REPORT INFORMATION
  Report Type: 
  Country: None (occurrence: None)
  Receive Date: 20050314
  Receipt Date: 20050308
  Transmission Date: 20050727
  Serious: No
  Sender: FDA-Public Use
  Company Number: 2005AP01569

PATIENT
  Sex: Female

DRUGS (10)
  1. LISINOPRIL [Suspect]
     Indication: ESSENTIAL HYPERTENSION
     Dosage: 20 MG DAILY PO
     Route: 048
     Dates: end: 20030428
  2. ASASANTIN [Suspect]
     Indication: CEREBROVASCULAR DISORDER
     Dosage: 2 DAILY PO
     Route: 048
     Dates: start: 20030415, end: 20030428
  3. ASASANTIN [Suspect]
     Indication: ILL-DEFINED DISORDER
     Dosage: 2 DAILY PO
     Route: 048
     Dates: start: 20030415, end: 20030428
  4. CEPHALEXIN [Suspect]
     Indication: URINARY TRACT DISORDER
     Dosage: 2 G DAILY PO
     Route: 048
     Dates: start: 20030412, end: 20030428
  5. LACTULOSE [Suspect]
     Dosage: 40 ML DAILY PO
     Route: 048
     Dates: end: 20030428
  6. HEPARIN [Suspect]
     Indication: PROPHYLAXIS
     Dosage: 10000 IU DAILY SQ
     Route: 058
     Dates: start: 20030422, end: 20030428
  7. NYSTATIN [Suspect]
     Indication: CANDIDIASIS
     Dosage: 4 ML DAILY PO
     Route: 048
     Dates: start: 20030423, end: 20030430
  8. ASPIRIN [Concomitant]
  9. MELOXICAM [Concomitant]
  10. SIMVASTATIN [Concomitant]

REACTIONS (3)
  - GASTRIC ULCER HAEMORRHAGE [None]
  - MELAENA [None]
  - RECTAL HAEMORRHAGE [None]
